FAERS Safety Report 21627384 (Version 3)
Quarter: 2022Q4

REPORT INFORMATION
  Report Type: Spontaneous
  Country: DE (occurrence: DE)
  Receive Date: 20221122
  Receipt Date: 20221130
  Transmission Date: 20230113
  Serious: Yes (Other)
  Sender: FDA-Public Use
  Company Number: DE-UCBSA-2022066345

PATIENT
  Sex: Male

DRUGS (1)
  1. NEUPRO [Suspect]
     Active Substance: ROTIGOTINE
     Indication: Restless legs syndrome
     Dosage: 8 MILLIGRAM
     Route: 062

REACTIONS (10)
  - Hallucination [Unknown]
  - Initial insomnia [Unknown]
  - Restlessness [Unknown]
  - Application site reaction [Unknown]
  - Agitation [Unknown]
  - Dysgraphia [Unknown]
  - Product adhesion issue [Unknown]
  - Overdose [Unknown]
  - Drug ineffective [Unknown]
  - Off label use [Unknown]
